FAERS Safety Report 14315996 (Version 2)
Quarter: 2019Q1

REPORT INFORMATION
  Report Type: Report from Study
  Country: DE (occurrence: DE)
  Receive Date: 20171221
  Receipt Date: 20190201
  Transmission Date: 20190417
  Serious: Yes (Hospitalization, Other)
  Sender: FDA-Public Use
  Company Number: DE-MYLANLABS-2017M1080247

PATIENT
  Age: 5 Year
  Sex: Male
  Weight: 21 kg

DRUGS (7)
  1. PREDNISON [Concomitant]
     Active Substance: PREDNISONE
     Dosage: 10 MG, QD
     Route: 048
     Dates: start: 20160125
  2. IBUPROFEN. [Suspect]
     Active Substance: IBUPROFEN
     Indication: STILL^S DISEASE
     Dosage: 200 MILLIGRAM
     Route: 048
     Dates: start: 20161110
  3. METHOTREXATE. [Suspect]
     Active Substance: METHOTREXATE
     Dosage: 10 MILLIGRAM, QW (10 MG MILLGRAM(S) EVERY WEEKS)
     Route: 058
     Dates: start: 20150512, end: 20151106
  4. ROACTEMRA [Suspect]
     Active Substance: TOCILIZUMAB
     Indication: STILL^S DISEASE
     Dosage: 200 MILLIGRAM, Q2W (200 MG MILLGRAM(S) EVERY 2 WEEKS)
     Route: 042
     Dates: start: 20151030, end: 20160114
  5. INDOMETACIN [Concomitant]
     Active Substance: INDOMETHACIN
     Indication: STILL^S DISEASE
     Dosage: 15 MILLIGRAM, QD
     Route: 048
     Dates: start: 20120703
  6. PREDNISON [Concomitant]
     Active Substance: PREDNISONE
     Indication: STILL^S DISEASE
     Dosage: 2.5 MILLIGRAM, Q2D
     Route: 048
     Dates: start: 20151030
  7. NAPROXEN. [Suspect]
     Active Substance: NAPROXEN
     Indication: STILL^S DISEASE
     Dosage: 250 MILLIGRAM
     Route: 048
     Dates: start: 20161110

REACTIONS (4)
  - Pneumonia [Recovered/Resolved]
  - Intracranial pressure increased [Recovered/Resolved]
  - Pleural effusion [Recovering/Resolving]
  - Headache [Recovered/Resolved]

NARRATIVE: CASE EVENT DATE: 20160124
